FAERS Safety Report 17542281 (Version 2)
Quarter: 2020Q1

REPORT INFORMATION
  Report Type: Spontaneous
  Country: BG (occurrence: BG)
  Receive Date: 20200313
  Receipt Date: 20200327
  Transmission Date: 20200409
  Serious: Yes (Other)
  Sender: FDA-Public Use
  Company Number: BG-009507513-2003BGR003193

PATIENT
  Age: 66 Year
  Sex: Male

DRUGS (1)
  1. LOSARTAN POTASSIUM. [Suspect]
     Active Substance: LOSARTAN POTASSIUM
     Indication: BLOOD PRESSURE INCREASED
     Dosage: 50 MILLIGRAM, QD
     Route: 048

REACTIONS (3)
  - Syncope [Unknown]
  - Cardiomyopathy [Unknown]
  - Bundle branch block [Unknown]
